FAERS Safety Report 13641406 (Version 5)
Quarter: 2017Q3

REPORT INFORMATION
  Report Type: Spontaneous
  Country: GB (occurrence: GB)
  Receive Date: 20170612
  Receipt Date: 20170828
  Transmission Date: 20171127
  Serious: Yes (Hospitalization)
  Sender: FDA-Public Use
  Company Number: GB-AUROBINDO-AUR-APL-2017-35069

PATIENT
  Age: 16 Year
  Sex: Female
  Weight: 66.4 kg

DRUGS (11)
  1. LYRICA [Suspect]
     Active Substance: PREGABALIN
     Dosage: 100 MG, TWO TIMES A DAY
     Route: 048
     Dates: start: 20170410, end: 2017
  2. RISPERIDONE. [Suspect]
     Active Substance: RISPERIDONE
     Indication: AFFECTIVE DISORDER
     Dosage: 1 MG, DAILY
     Route: 048
     Dates: start: 201608, end: 2016
  3. RISPERIDONE. [Suspect]
     Active Substance: RISPERIDONE
     Dosage: 7 MG,
     Route: 048
     Dates: start: 2017, end: 201703
  4. RISPERIDONE. [Suspect]
     Active Substance: RISPERIDONE
     Dosage: 7 MG,
     Route: 065
     Dates: start: 201612, end: 2017
  5. CLONAZEPAM. [Concomitant]
     Active Substance: CLONAZEPAM
     Indication: AGITATION
     Dosage: 1 MG DECREASED TO 0.5 MG
     Route: 048
     Dates: start: 20170508, end: 201705
  6. CLONAZEPAM. [Concomitant]
     Active Substance: CLONAZEPAM
     Dosage: DOSAGE FORM: UNSPECIFIED, 1 MG DECREASED TO 0.5 MG
     Route: 048
     Dates: start: 20170508, end: 20170516
  7. LYRICA [Suspect]
     Active Substance: PREGABALIN
     Indication: POST-TRAUMATIC STRESS DISORDER
     Dosage: DOSAGE FORM: UNSPECIFIED
     Route: 048
     Dates: start: 201609, end: 20170410
  8. MELATONIN [Concomitant]
     Active Substance: MELATONIN
     Dosage: DOSAGE FORM: UNSPECIFIED
     Route: 048
     Dates: start: 201609, end: 201705
  9. MELATONIN [Concomitant]
     Active Substance: MELATONIN
     Indication: INSOMNIA
     Dosage: 6 MG, DOSAGE FORM: UNSPECIFIED
     Route: 048
     Dates: start: 201608
  10. CLONAZEPAM. [Concomitant]
     Active Substance: CLONAZEPAM
     Dosage: DOSAGE FORM: UNSPECIFIED
     Route: 048
     Dates: start: 20170516
  11. LYRICA [Suspect]
     Active Substance: PREGABALIN
     Dosage: 150 MG, TWO TIMES A DAY
     Route: 048
     Dates: start: 2017, end: 2017

REACTIONS (4)
  - Joint stiffness [Recovered/Resolved]
  - Condition aggravated [Not Recovered/Not Resolved]
  - Galactorrhoea [Recovered/Resolved]
  - Hyperprolactinaemia [Recovered/Resolved]

NARRATIVE: CASE EVENT DATE: 201702
